FAERS Safety Report 12422349 (Version 1)
Quarter: 2016Q2

REPORT INFORMATION
  Report Type: Spontaneous
  Country: VE (occurrence: VE)
  Receive Date: 20160601
  Receipt Date: 20160601
  Transmission Date: 20160815
  Serious: Yes (Hospitalization)
  Sender: FDA-Public Use
  Company Number: PHHY2016VE071721

PATIENT
  Sex: Male

DRUGS (3)
  1. CATAPRESAN//CLONIDINE HYDROCHLORIDE [Concomitant]
     Indication: TENSION
     Dosage: 12.5 MG, QD
     Route: 065
  2. IRBESARTAN. [Suspect]
     Active Substance: IRBESARTAN
     Indication: DIABETIC NEPHROPATHY
     Dosage: 150 MG, QD
     Route: 048
  3. AMLODIPINA//AMLODIPINE BESILATE [Concomitant]
     Indication: TENSION
     Dosage: 5 MG, QD
     Route: 065

REACTIONS (3)
  - Diabetes mellitus [Not Recovered/Not Resolved]
  - Malaise [Not Recovered/Not Resolved]
  - Hypertension [Not Recovered/Not Resolved]

NARRATIVE: CASE EVENT DATE: 20160519
